FAERS Safety Report 8780587 (Version 1)
Quarter: 2012Q4

REPORT INFORMATION
  Report Type: 
  Country: IT (occurrence: IT)
  Receive Date: 20120913
  Receipt Date: 20120913
  Transmission Date: 20130627
  Serious: Yes (Other)
  Sender: FDA-Public Use
  Company Number: IT-PFIZER INC-2012223895

PATIENT
  Age: 57 Year
  Sex: Male

DRUGS (6)
  1. CHAMPIX [Suspect]
     Dosage: UNK
  2. PROCAPTAN [Concomitant]
     Dosage: UNK
  3. EUTIROX [Concomitant]
     Dosage: UNK
  4. LANSOPRAZOLE [Concomitant]
     Dosage: UNK
  5. GAVISCON [Concomitant]
     Dosage: UNK
  6. CARVEDILOL [Concomitant]
     Dosage: UNK

REACTIONS (1)
  - Colitis ulcerative [Unknown]
